FAERS Safety Report 5938639-4 (Version None)
Quarter: 2008Q4

REPORT INFORMATION
  Report Type: 
  Country: None (occurrence: None)
  Receive Date: 20081103
  Receipt Date: 20081020
  Transmission Date: 20090506
  Serious: Yes (Other)
  Sender: FDA-Public Use
  Company Number: US-ELI_LILLY_AND_COMPANY-US200810004930

PATIENT
  Sex: Female

DRUGS (15)
  1. FORTEO [Suspect]
     Indication: OSTEOPOROSIS
     Dosage: 20 UG, DAILY (1/D)
     Dates: start: 20071101, end: 20080911
  2. DEPAKOTE [Concomitant]
     Indication: BIPOLAR DISORDER
     Dosage: 125 MG, 4/D
  3. POTASSIUM CHLORIDE [Concomitant]
     Dosage: 40 MEQ, 2/D
     Route: 048
  4. VITAMIN D [Concomitant]
     Indication: ELECTROLYTE IMBALANCE
     Dosage: 50000 U, WEEKLY (1/W)
     Dates: end: 20081011
  5. VITAMIN D [Concomitant]
     Dosage: 7000 U, WEEKLY (1/W)
     Dates: start: 20081001
  6. CALCIUM [Concomitant]
     Dates: end: 20081011
  7. HYDROCORTISONE [Concomitant]
     Indication: ADRENAL INSUFFICIENCY
  8. CYTOMEL [Concomitant]
     Indication: ADRENAL INSUFFICIENCY
     Dosage: 5 UG, DAILY (1/D)
  9. FLUDROCORTISONE ACETATE [Concomitant]
     Indication: ADRENAL INSUFFICIENCY
     Dosage: 0.1 MG, 2/D
  10. SPIRONOLACTONE [Concomitant]
     Indication: ADRENAL INSUFFICIENCY
     Dosage: 25 MG, DAILY (1/D)
  11. SYNTHROID [Concomitant]
     Indication: HYPOTHYROIDISM
     Dosage: 0.05 MG, DAILY (1/D)
  12. NITROFURANTOIN [Concomitant]
     Indication: URINARY TRACT INFECTION
     Dosage: 100 MG, DAILY (1/D)
  13. CRANBERRY [Concomitant]
     Dosage: 3000 MG, DAILY (1/D)
  14. TRAZODONE HCL [Concomitant]
     Indication: SLEEP DISORDER
     Dosage: 50 MG, AS NEEDED
  15. LORAZEPAM [Concomitant]
     Dosage: 0.5 MG, AS NEEDED

REACTIONS (3)
  - CATHETER RELATED COMPLICATION [None]
  - SEPSIS [None]
  - URINARY TRACT INFECTION [None]
